FAERS Safety Report 6195568-1 (Version None)
Quarter: 2009Q2

REPORT INFORMATION
  Report Type: 
  Country: None (occurrence: None)
  Receive Date: 20090519
  Receipt Date: 20090512
  Transmission Date: 20091009
  Serious: Yes (Hospitalization)
  Sender: FDA-Public Use
  Company Number: PHHY2009TR18503

PATIENT
  Age: 73 Year
  Sex: Female
  Weight: 80 kg

DRUGS (2)
  1. DIOVAN [Suspect]
     Indication: HYPERTENSION
     Dosage: 80 MG, BID
     Route: 048
     Dates: start: 20050525
  2. NIFEDIPINE [Suspect]
     Dosage: 30 MG, UNK
     Route: 048
     Dates: start: 20050525

REACTIONS (2)
  - BREAST CANCER [None]
  - SURGERY [None]
